FAERS Safety Report 4281254-1 (Version None)
Quarter: 2004Q1

REPORT INFORMATION
  Report Type: 
  Country: None (occurrence: None)
  Receive Date: 20040112
  Receipt Date: 20031008
  Transmission Date: 20041129
  Serious: Yes (Other)
  Sender: FDA-Public Use
  Company Number: 348982

PATIENT
  Sex: Male
  Weight: 66.7 kg

DRUGS (4)
  1. FUZEON [Suspect]
     Indication: HIV INFECTION
     Dates: start: 20031001, end: 20031010
  2. KALETRA [Suspect]
     Indication: DRUG USE FOR UNKNOWN INDICATION
  3. REYATAZ (ATAZANAVIR) [Suspect]
     Indication: DRUG USE FOR UNKNOWN INDICATION
     Dates: start: 20031015
  4. VIREAD [Concomitant]

REACTIONS (7)
  - DECREASED ACTIVITY [None]
  - FATIGUE [None]
  - HYPERSOMNIA [None]
  - NAUSEA [None]
  - RASH [None]
  - SWELLING FACE [None]
  - VOMITING [None]
